FAERS Safety Report 4736532-6 (Version None)
Quarter: 2005Q3

REPORT INFORMATION
  Report Type: 
  Country: None (occurrence: None)
  Receive Date: 20050802
  Receipt Date: 20050720
  Transmission Date: 20060218
  Serious: Yes (Disabling)
  Sender: FDA-Public Use
  Company Number: 2005105517

PATIENT
  Age: 50 Year
  Sex: Female

DRUGS (4)
  1. EPIRUBICIN HCL [Suspect]
     Indication: BREAST CANCER
     Dosage: 10 MG (10 MG, CYCLICAL), INTRAVENOUS
     Route: 042
     Dates: start: 20040115, end: 20040815
  2. TAXOTERE [Suspect]
     Indication: BREAST CANCER
     Dosage: (CYCLICAL), INTRAVENOUS
     Route: 042
     Dates: start: 20040115, end: 20040815
  3. FLUOROURACIL [Suspect]
     Indication: BREAST CANCER
     Dosage: (CYCLICAL), INTRAVENOUS
     Route: 042
     Dates: start: 20040115, end: 20040815
  4. CYCLOPHOSPHAMIDE [Suspect]
     Indication: BREAST CANCER
     Dosage: (CYCLICAL), INTRAVENOUS
     Route: 042
     Dates: start: 20040115, end: 20040815

REACTIONS (3)
  - MOBILITY DECREASED [None]
  - PAIN IN EXTREMITY [None]
  - RHEUMATOID FACTOR INCREASED [None]
